FAERS Safety Report 17414427 (Version 1)
Quarter: 2020Q1

REPORT INFORMATION
  Report Type: Spontaneous
  Country: NL (occurrence: NL)
  Receive Date: 20200213
  Receipt Date: 20200213
  Transmission Date: 20200409
  Serious: Yes (Other)
  Sender: FDA-Public Use
  Company Number: NL-FRESENIUS KABI-FK202001374

PATIENT
  Age: 24 Year
  Sex: Female

DRUGS (8)
  1. LACTULOSE (MANUFACTURER UNKNOWN) [Suspect]
     Active Substance: LACTULOSE
     Indication: CONSTIPATION
     Dosage: SINCE THE AGE OF APPROX. 14
     Route: 065
  2. BISACODYL. [Suspect]
     Active Substance: BISACODYL
     Dosage: FOR ABOUT 8 YEARS, BETWEEN 6 AND 9 TABLETS AVERAGE
     Route: 065
     Dates: start: 2012
  3. SODIUM PHOSPHATE [Suspect]
     Active Substance: SODIUM PHOSPHATE
     Indication: CONSTIPATION
     Dosage: 40 ML BOTTLES, SINCE THE AGE OF APPROX. 14
     Route: 048
  4. BISACODYL. [Suspect]
     Active Substance: BISACODYL
     Indication: CONSTIPATION
     Dosage: ON THE 2 DAYS IN BETWEEN THE PATIENT USES 2 BISACODYL, ONLY IN BAD PERIODS
     Route: 065
  5. SODIUM PHOSPHATE DIBASIC DODECAHYDRATE/SODIUM PHOSPHATE MONOBASIC (DIHYDRATE) [Suspect]
     Active Substance: SODIUM PHOSPHATE, DIBASIC, DODECAHYDRATE\SODIUM PHOSPHATE, MONOBASIC
     Indication: CONSTIPATION
     Dosage: RINSING, APPROX. ONCE EVERY 2 MONTHS, SINCE THE AGE OF APPROX. 14
     Route: 065
  6. BISACODYL. [Suspect]
     Active Substance: BISACODYL
     Dosage: THE PATIENT^S RECORD DOSING IS 11
     Route: 065
  7. SODIUM PHOSPHATE DIBASIC/PHOSPHORIC ACID SODIUM [Suspect]
     Active Substance: PHOSPHORIC ACID\SODIUM PHOSPHATE, DIBASIC
     Indication: CONSTIPATION
     Dosage: ENEMA, WHEN NECESSARY, SINCE THE AGE OF APPROX. 14
     Route: 065
  8. SODIUM BICARBONATE/POTASSIUM CHLORIDE/SODIUM CHLORIDE/MACROGOL [Suspect]
     Active Substance: POLYETHYLENE GLYCOL\POTASSIUM CHLORIDE\SODIUM BICARBONATE\SODIUM CHLORIDE
     Indication: CONSTIPATION
     Dosage: SACHETS, SINCE THE AGE OF APPROX. 14
     Route: 065

REACTIONS (19)
  - Swelling [Unknown]
  - Overdose [Unknown]
  - Headache [Unknown]
  - Dyspnoea [Unknown]
  - Ocular discomfort [Unknown]
  - Drug ineffective [Unknown]
  - Myalgia [Unknown]
  - Brain oedema [Unknown]
  - Skin texture abnormal [Unknown]
  - Adrenal disorder [Unknown]
  - Pain [Unknown]
  - Fluid retention [Unknown]
  - Weight increased [Unknown]
  - Anticipatory anxiety [Unknown]
  - Paraesthesia [Unknown]
  - Pulmonary oedema [Unknown]
  - Syncope [Unknown]
  - Musculoskeletal stiffness [Unknown]
  - Muscle oedema [Unknown]

NARRATIVE: CASE EVENT DATE: 2019
